FAERS Safety Report 5333475-4 (Version None)
Quarter: 2007Q2

REPORT INFORMATION
  Report Type: 
  Country: None (occurrence: None)
  Receive Date: 20070522
  Receipt Date: 20070522
  Transmission Date: 20071010
  Serious: Yes (Hospitalization)
  Sender: FDA-Public Use
  Company Number: None

PATIENT
  Age: 37 Year
  Sex: Female
  Weight: 119 kg

DRUGS (1)
  1. YAZ [Suspect]
     Indication: DYSFUNCTIONAL UTERINE BLEEDING
     Dosage: ONCE DAILY PO
     Route: 048
     Dates: start: 20070101, end: 20070520

REACTIONS (1)
  - PULMONARY EMBOLISM [None]
